FAERS Safety Report 20841092 (Version 1)
Quarter: 2022Q2

REPORT INFORMATION
  Report Type: Spontaneous
  Country: US (occurrence: US)
  Receive Date: 20220517
  Receipt Date: 20220517
  Transmission Date: 20220720
  Serious: No
  Sender: FDA-Public Use
  Company Number: US-PFIZER INC-202200066124

PATIENT
  Age: 72 Year
  Sex: Female
  Weight: 68.04 kg

DRUGS (1)
  1. TESTOSTERONE [Suspect]
     Active Substance: TESTOSTERONE
     Dosage: UNK

REACTIONS (2)
  - Headache [Unknown]
  - Anger [Unknown]
